FAERS Safety Report 22036538 (Version 1)
Quarter: 2023Q1

REPORT INFORMATION
  Report Type: Spontaneous
  Country: US (occurrence: US)
  Receive Date: 20230225
  Receipt Date: 20230225
  Transmission Date: 20230417
  Serious: No
  Sender: FDA-Public Use
  Company Number: US-002147023-NVSC2023US041467

PATIENT
  Age: 52 Year
  Sex: Male

DRUGS (2)
  1. LEQVIO [Suspect]
     Active Substance: INCLISIRAN SODIUM
     Indication: Low density lipoprotein increased
     Dosage: 284 MG (1ST DOSE IN NOVEMBER AND 2ND DOSE AT 3 MONTHS IN FEBRUARY)
     Route: 058
     Dates: start: 20221101, end: 20230201
  2. LEQVIO [Suspect]
     Active Substance: INCLISIRAN SODIUM
     Indication: Blood calcium increased

REACTIONS (1)
  - Drug ineffective [Not Recovered/Not Resolved]
